FAERS Safety Report 20380209 (Version 3)
Quarter: 2022Q3

REPORT INFORMATION
  Report Type: Report from Study
  Country: FR (occurrence: FR)
  Receive Date: 20220126
  Receipt Date: 20220704
  Transmission Date: 20221027
  Serious: Yes (Hospitalization)
  Sender: FDA-Public Use
  Company Number: FR-TAKEDA-2022TUS004929

PATIENT
  Age: 69 Year
  Sex: Female

DRUGS (24)
  1. TEDUGLUTIDE [Suspect]
     Active Substance: TEDUGLUTIDE
     Indication: Short-bowel syndrome
     Dosage: 2.45 MILLIGRAM, QD
     Route: 042
     Dates: start: 20180328, end: 20181114
  2. TEDUGLUTIDE [Suspect]
     Active Substance: TEDUGLUTIDE
     Indication: Short-bowel syndrome
     Dosage: 2.45 MILLIGRAM, QD
     Route: 042
     Dates: start: 20180328, end: 20181114
  3. TEDUGLUTIDE [Suspect]
     Active Substance: TEDUGLUTIDE
     Indication: Short-bowel syndrome
     Dosage: 2.45 MILLIGRAM, QD
     Route: 042
     Dates: start: 20180328, end: 20181114
  4. TEDUGLUTIDE [Suspect]
     Active Substance: TEDUGLUTIDE
     Indication: Short-bowel syndrome
     Dosage: 2.45 MILLIGRAM, QD
     Route: 042
     Dates: start: 20180328, end: 20181114
  5. TEDUGLUTIDE [Suspect]
     Active Substance: TEDUGLUTIDE
     Dosage: 2.02 MILLIGRAM, QD
     Route: 042
     Dates: start: 20181114, end: 20190922
  6. TEDUGLUTIDE [Suspect]
     Active Substance: TEDUGLUTIDE
     Dosage: 2.02 MILLIGRAM, QD
     Route: 042
     Dates: start: 20181114, end: 20190922
  7. TEDUGLUTIDE [Suspect]
     Active Substance: TEDUGLUTIDE
     Dosage: 2.02 MILLIGRAM, QD
     Route: 042
     Dates: start: 20181114, end: 20190922
  8. TEDUGLUTIDE [Suspect]
     Active Substance: TEDUGLUTIDE
     Dosage: 2.02 MILLIGRAM, QD
     Route: 042
     Dates: start: 20181114, end: 20190922
  9. TEDUGLUTIDE [Suspect]
     Active Substance: TEDUGLUTIDE
     Dosage: 2.04 MILLIGRAM, QD
     Route: 042
     Dates: start: 20190923, end: 20201124
  10. TEDUGLUTIDE [Suspect]
     Active Substance: TEDUGLUTIDE
     Dosage: 2.04 MILLIGRAM, QD
     Route: 042
     Dates: start: 20190923, end: 20201124
  11. TEDUGLUTIDE [Suspect]
     Active Substance: TEDUGLUTIDE
     Dosage: 2.04 MILLIGRAM, QD
     Route: 042
     Dates: start: 20190923, end: 20201124
  12. TEDUGLUTIDE [Suspect]
     Active Substance: TEDUGLUTIDE
     Dosage: 2.04 MILLIGRAM, QD
     Route: 042
     Dates: start: 20190923, end: 20201124
  13. TEDUGLUTIDE [Suspect]
     Active Substance: TEDUGLUTIDE
     Dosage: 2.2 MILLIGRAM, QD
     Route: 042
     Dates: start: 20201124, end: 20210907
  14. TEDUGLUTIDE [Suspect]
     Active Substance: TEDUGLUTIDE
     Dosage: 2.2 MILLIGRAM, QD
     Route: 042
     Dates: start: 20201124, end: 20210907
  15. TEDUGLUTIDE [Suspect]
     Active Substance: TEDUGLUTIDE
     Dosage: 2.2 MILLIGRAM, QD
     Route: 042
     Dates: start: 20201124, end: 20210907
  16. TEDUGLUTIDE [Suspect]
     Active Substance: TEDUGLUTIDE
     Dosage: 2.2 MILLIGRAM, QD
     Route: 042
     Dates: start: 20201124, end: 20210907
  17. TEDUGLUTIDE [Suspect]
     Active Substance: TEDUGLUTIDE
     Dosage: 2.2 MILLIGRAM, QD
     Route: 042
     Dates: start: 20211004
  18. TEDUGLUTIDE [Suspect]
     Active Substance: TEDUGLUTIDE
     Dosage: 2.2 MILLIGRAM, QD
     Route: 042
     Dates: start: 20211004
  19. TEDUGLUTIDE [Suspect]
     Active Substance: TEDUGLUTIDE
     Dosage: 2.2 MILLIGRAM, QD
     Route: 042
     Dates: start: 20211004
  20. TEDUGLUTIDE [Suspect]
     Active Substance: TEDUGLUTIDE
     Dosage: 2.2 MILLIGRAM, QD
     Route: 042
     Dates: start: 20211004
  21. URSODIOL [Concomitant]
     Active Substance: URSODIOL
     Indication: Cholestasis
     Dosage: 200 MILLIGRAM, BID
     Route: 048
     Dates: start: 201710, end: 20210209
  22. PENICILLIN V [Concomitant]
     Active Substance: PENICILLIN V
     Indication: Splenectomy
     Dosage: 1000000 INTERNATIONAL UNIT, BID
     Route: 048
     Dates: start: 20170111, end: 20210105
  23. ATORVASTATIN [Concomitant]
     Active Substance: ATORVASTATIN
     Indication: Cerebrovascular accident
     Dosage: 10 MILLIGRAM, QD
     Route: 048
     Dates: start: 2008
  24. PERINDOPRIL [Concomitant]
     Active Substance: PERINDOPRIL
     Indication: Blood pressure increased
     Dosage: 25 MILLIGRAM, QD
     Route: 048

REACTIONS (2)
  - Dehydration [Recovered/Resolved]
  - Abdominal pain upper [Recovered/Resolved]

NARRATIVE: CASE EVENT DATE: 20180328
